FAERS Safety Report 24462316 (Version 2)
Quarter: 2024Q4

REPORT INFORMATION
  Report Type: Spontaneous
  Country: US (occurrence: US)
  Receive Date: 20241018
  Receipt Date: 20241023
  Transmission Date: 20250115
  Serious: No
  Sender: ROCHE
  Company Number: US-ROCHE-10000109383

PATIENT
  Sex: Female

DRUGS (1)
  1. ROZLYTREK [Suspect]
     Active Substance: ENTRECTINIB
     Indication: Pancreatic carcinoma
     Route: 048
     Dates: start: 202408

REACTIONS (4)
  - Dizziness [Unknown]
  - Ataxia [Unknown]
  - Constipation [Unknown]
  - Off label use [Unknown]
